FAERS Safety Report 8486214-2 (Version None)
Quarter: 2012Q3

REPORT INFORMATION
  Report Type: 
  Country: None (occurrence: None)
  Receive Date: 20120703
  Receipt Date: 20120621
  Transmission Date: 20120928
  Serious: Yes (Hospitalization, Other)
  Sender: FDA-Public Use
  Company Number: US-ELI_LILLY_AND_COMPANY-US201206008125

PATIENT
  Sex: Male

DRUGS (2)
  1. CARBOPLATIN [Concomitant]
     Dosage: UNK, UNKNOWN
     Route: 065
  2. GEMZAR [Suspect]
     Indication: LUNG NEOPLASM MALIGNANT
     Dosage: UNK, UNKNOWN
     Route: 065
     Dates: start: 20080401, end: 20111001

REACTIONS (3)
  - WHITE BLOOD CELL COUNT DECREASED [None]
  - IMMUNOSUPPRESSION [None]
  - NEOPLASM MALIGNANT [None]
